FAERS Safety Report 17784249 (Version 2)
Quarter: 2020Q2

REPORT INFORMATION
  Report Type: Spontaneous
  Country: US (occurrence: US)
  Receive Date: 20200513
  Receipt Date: 20200629
  Transmission Date: 20200714
  Serious: No
  Sender: FDA-Public Use
  Company Number: US-PFIZER INC-2020100458

PATIENT
  Age: 60 Year
  Sex: Female

DRUGS (2)
  1. XELJANZ [Suspect]
     Active Substance: TOFACITINIB CITRATE
     Dosage: UNK, (XELJANZ 5 MG TABLET)
     Dates: start: 20200310
  2. XELJANZ [Suspect]
     Active Substance: TOFACITINIB CITRATE
     Dosage: UNK (5 MG)
     Dates: start: 2015

REACTIONS (3)
  - Product dose omission [Unknown]
  - Malaise [Unknown]
  - Joint injury [Unknown]
